FAERS Safety Report 11757207 (Version 1)
Quarter: 2015Q4

REPORT INFORMATION
  Report Type: Spontaneous
  Country: US (occurrence: None)
  Receive Date: 20151119
  Receipt Date: 20151119
  Transmission Date: 20160304
  Serious: Yes (Other)
  Sender: FDA-Public Use
  Company Number: None

PATIENT
  Age: 71 Year
  Sex: Female
  Weight: 52 kg

DRUGS (13)
  1. DOCUSATE [Concomitant]
     Active Substance: DOCUSATE
  2. LEFLUNOMIDE. [Concomitant]
     Active Substance: LEFLUNOMIDE
  3. MYCOPHENOLIC ACID. [Concomitant]
     Active Substance: MYCOPHENOLIC ACID
  4. CIDOFOVIR 75 MG/5 ML [Suspect]
     Active Substance: CIDOFOVIR
     Indication: BK VIRUS INFECTION
     Route: 042
     Dates: start: 20150323, end: 20150608
  5. CIPROFLOXACIN. [Concomitant]
     Active Substance: CIPROFLOXACIN
  6. CALCIUM CITRATE [Concomitant]
     Active Substance: CALCIUM CITRATE
  7. METOPROLOL [Concomitant]
     Active Substance: METOPROLOL
  8. MULTIVITAMIN [Concomitant]
     Active Substance: VITAMINS
  9. TENOFOVIR [Concomitant]
     Active Substance: TENOFOVIR
  10. ESOMEPRAZOLE [Concomitant]
     Active Substance: ESOMEPRAZOLE
  11. TACROLIMUS. [Concomitant]
     Active Substance: TACROLIMUS
  12. NPH INSULIN [Concomitant]
     Active Substance: INSULIN BEEF
  13. ERGOCALCIFEROL. [Concomitant]
     Active Substance: ERGOCALCIFEROL

REACTIONS (1)
  - Uveitis [None]

NARRATIVE: CASE EVENT DATE: 20150615
